FAERS Safety Report 5458835-2 (Version None)
Quarter: 2007Q3

REPORT INFORMATION
  Report Type: 
  Country: None (occurrence: None)
  Receive Date: 20070919
  Receipt Date: 20070907
  Transmission Date: 20080115
  Serious: Yes (Other)
  Sender: FDA-Public Use
  Company Number: FR-AMGEN-US243139

PATIENT
  Age: 52 Year
  Sex: Male

DRUGS (1)
  1. ENBREL [Suspect]
     Indication: RHEUMATOID ARTHRITIS
     Dosage: 25 MG (FREQUENCY UNSPECIFIED). TOTAL OF 26 INJECTIONS
     Route: 058
     Dates: start: 20061201, end: 20070101

REACTIONS (1)
  - TONGUE NEOPLASM [None]
